FAERS Safety Report 7742875-4 (Version None)
Quarter: 2011Q3

REPORT INFORMATION
  Report Type: 
  Country: None (occurrence: None)
  Receive Date: 20110912
  Receipt Date: 20110901
  Transmission Date: 20111222
  Serious: Yes (Hospitalization)
  Sender: FDA-Public Use
  Company Number: FR-ELI_LILLY_AND_COMPANY-FR201107004820

PATIENT
  Sex: Female

DRUGS (8)
  1. FORTEO [Suspect]
     Indication: OSTEOPOROSIS
     Dosage: 20 UG, QD
     Route: 058
     Dates: start: 20101215
  2. LUBENTYL [Concomitant]
     Dosage: 1 DF, QD
     Route: 048
     Dates: start: 20110707
  3. LEVOTHYROXINE SODIUM [Concomitant]
     Dosage: 75 MG, QD
     Route: 048
     Dates: start: 20110707
  4. TETRAZEPAM [Concomitant]
     Dosage: 50 MG, QD
     Route: 048
     Dates: start: 20110725
  5. AMIODARONE HCL [Concomitant]
     Dosage: 200 MG, UNK
     Route: 048
     Dates: start: 20110707
  6. PROPRANOLOL [Concomitant]
     Dosage: 0.5 DF, UNK
     Route: 048
     Dates: start: 20110707
  7. COUMADIN [Concomitant]
     Dosage: 1.5 DF, QD
     Route: 048
     Dates: start: 20110707
  8. CALTRATE + VITAMIN D [Concomitant]
     Dosage: 600 MG, QD
     Route: 048
     Dates: start: 20110707

REACTIONS (2)
  - PAIN [None]
  - ATRIAL FIBRILLATION [None]
